FAERS Safety Report 22186808 (Version 1)
Quarter: 2023Q2

REPORT INFORMATION
  Report Type: Spontaneous
  Country: US (occurrence: None)
  Receive Date: 20230407
  Receipt Date: 20230407
  Transmission Date: 20230721
  Serious: Yes (Other)
  Sender: FDA-Public Use
  Company Number: None

PATIENT
  Age: 45 Year
  Sex: Female
  Weight: 76.5 kg

DRUGS (6)
  1. KESIMPTA [Suspect]
     Active Substance: OFATUMUMAB
     Indication: Multiple sclerosis
     Dosage: OTHER QUANTITY : 1 INJECTION(S);?OTHER FREQUENCY : 3 THAN 1 A MONTH;?
     Route: 030
     Dates: start: 20230227, end: 20230317
  2. Gapabetin [Concomitant]
  3. BACLOFEN [Concomitant]
  4. Modafenil [Concomitant]
  5. spirolactone [Concomitant]
  6. MACROBID [Concomitant]
     Active Substance: NITROFURANTOIN\NITROFURANTOIN MONOHYDRATE

REACTIONS (4)
  - Lymphadenopathy [None]
  - Drug hypersensitivity [None]
  - Infection [None]
  - Headache [None]

NARRATIVE: CASE EVENT DATE: 20230318
